FAERS Safety Report 4300129-2 (Version None)
Quarter: 2004Q1

REPORT INFORMATION
  Report Type: 
  Country: None (occurrence: None)
  Receive Date: 20040218
  Receipt Date: 20040129
  Transmission Date: 20041129
  Serious: Yes (Death, Life-Threatening, Hospitalization, Other)
  Sender: FDA-Public Use
  Company Number: JP_031001885

PATIENT
  Age: 70 Year
  Sex: Male

DRUGS (8)
  1. GEMZAR [Suspect]
     Indication: SMALL CELL LUNG CANCER STAGE UNSPECIFIED
     Dosage: 1000 MG/M2/OTHER
     Dates: start: 20021211, end: 20021211
  2. TAXOL ^BRISTOL-MYERS SQUIBB^ (PACLITAXEL) [Concomitant]
  3. DIPHENHYDRAMINE HCL [Concomitant]
  4. EVIPROSTAT [Concomitant]
  5. ALLOID (SODIUM ALGINATE) [Concomitant]
  6. PENFILL R (INSULIN HUMAN) [Concomitant]
  7. MAGNESIUM OXIDE [Concomitant]
  8. PANTOSIN (PANTETHINE) [Concomitant]

REACTIONS (10)
  - ANAEMIA [None]
  - DEEP VEIN THROMBOSIS [None]
  - DYSPNOEA [None]
  - INTERSTITIAL LUNG DISEASE [None]
  - LEUKOPENIA [None]
  - OXYGEN SATURATION DECREASED [None]
  - PULMONARY INFARCTION [None]
  - PYREXIA [None]
  - THROMBOCYTOPENIA [None]
  - VENTRICULAR FIBRILLATION [None]
